FAERS Safety Report 11886829 (Version 1)
Quarter: 2016Q1

REPORT INFORMATION
  Report Type: Spontaneous
  Country: GB (occurrence: GB)
  Receive Date: 20160104
  Receipt Date: 20160104
  Transmission Date: 20160526
  Serious: Yes (Disabling)
  Sender: FDA-Public Use
  Company Number: GB-SA-2015SA220716

PATIENT
  Age: 92 Year
  Sex: Female
  Weight: 34 kg

DRUGS (7)
  1. MATRIFEN [Concomitant]
     Active Substance: FENTANYL
     Indication: PAIN
     Dosage: STABLE DOSE FOR YEARS
  2. SENNA [Concomitant]
     Active Substance: SENNA LEAF\SENNOSIDES\SENNOSIDES A AND B
  3. OLANZAPINE. [Concomitant]
     Active Substance: OLANZAPINE
  4. PARACETAMOL [Concomitant]
     Active Substance: ACETAMINOPHEN
  5. ASPIRIN. [Concomitant]
     Active Substance: ASPIRIN
     Dates: end: 201505
  6. CLOPIDOGREL BISULFATE. [Suspect]
     Active Substance: CLOPIDOGREL BISULFATE
     Indication: CEREBROVASCULAR DISORDER
     Route: 065
     Dates: start: 20130513, end: 20151118
  7. LAXIDO [Concomitant]
     Active Substance: POLYETHYLENE GLYCOL 3350\POTASSIUM CHLORIDE\SODIUM BICARBONATE\SODIUM CHLORIDE

REACTIONS (3)
  - Confusional state [Recovered/Resolved]
  - Hyporesponsive to stimuli [Recovered/Resolved]
  - Mental impairment [Recovered/Resolved]
